FAERS Safety Report 23569468 (Version 2)
Quarter: 2025Q4

REPORT INFORMATION
  Report Type: Spontaneous
  Country: US (occurrence: US)
  Receive Date: 20240227
  Receipt Date: 20251203
  Transmission Date: 20260119
  Serious: Yes (Hospitalization, Other)
  Sender: JOHNSON AND JOHNSON
  Company Number: US-JNJFOC-20240233557

PATIENT
  Age: 5 Decade
  Sex: Female

DRUGS (2)
  1. REMICADE [Suspect]
     Active Substance: INFLIXIMAB
     Indication: Inflammatory bowel disease
     Route: 041
     Dates: start: 202106
  2. OXYCODONE [Suspect]
     Active Substance: OXYCODONE
     Indication: Product used for unknown indication
     Route: 065

REACTIONS (12)
  - Renal failure [Unknown]
  - Liver disorder [Unknown]
  - Leukaemia [Unknown]
  - Photosensitivity reaction [Unknown]
  - Contusion [Recovering/Resolving]
  - Dehydration [Unknown]
  - Eye pain [Unknown]
  - Fatigue [Unknown]
  - Dental caries [Unknown]
  - Connective tissue disorder [Unknown]
  - Back pain [Unknown]
  - Disorientation [Unknown]
